FAERS Safety Report 4783758-1 (Version None)
Quarter: 2005Q3

REPORT INFORMATION
  Report Type: 
  Country: None (occurrence: None)
  Receive Date: 20050928
  Receipt Date: 20050915
  Transmission Date: 20060218
  Serious: Yes (Hospitalization)
  Sender: FDA-Public Use
  Company Number: 2005130562

PATIENT
  Age: 81 Year
  Sex: Male
  Weight: 60 kg

DRUGS (5)
  1. AMLODIPINE [Suspect]
     Indication: ILL-DEFINED DISORDER
     Dosage: 10 MG (5 MG, 2 IN 1 D), ORAL
     Route: 048
  2. LORAZEPAM [Suspect]
     Indication: ILL-DEFINED DISORDER
     Dosage: 1 MG (1 IN 1 D), ORAL
     Route: 048
  3. TADENAN (PYGEUM AFRICANUM) [Suspect]
     Indication: ILL-DEFINED DISORDER
     Dosage: 100 MG (50 MG, 2 IN 1 D), ORAL
     Route: 048
  4. ALLOPURINOL [Suspect]
     Indication: ILL-DEFINED DISORDER
     Dosage: 200 MG (1 IN 1 D), ORAL
     Route: 048
  5. TANAKAN (GINKGO BILOBA EXTRACT) [Concomitant]

REACTIONS (5)
  - CONFUSIONAL STATE [None]
  - DERMATITIS [None]
  - HAEMATOCRIT DECREASED [None]
  - HYPONATRAEMIA [None]
  - NECROSIS [None]
